FAERS Safety Report 25594049 (Version 1)
Quarter: 2025Q3

REPORT INFORMATION
  Report Type: Report from Study
  Country: PK (occurrence: PK)
  Receive Date: 20250723
  Receipt Date: 20250723
  Transmission Date: 20251021
  Serious: Yes (Death)
  Sender: ROCHE
  Company Number: PK-ROCHE-10000342639

PATIENT
  Age: 64 Year
  Sex: Male

DRUGS (1)
  1. AVASTIN [Suspect]
     Active Substance: BEVACIZUMAB
     Indication: Hepatocellular carcinoma
     Route: 042
     Dates: start: 20250312

REACTIONS (1)
  - Hepatic failure [Fatal]
